FAERS Safety Report 13146637 (Version 1)
Quarter: 2017Q1

REPORT INFORMATION
  Report Type: Spontaneous
  Country: CA (occurrence: CA)
  Receive Date: 20170125
  Receipt Date: 20170125
  Transmission Date: 20170428
  Serious: Yes (Other)
  Sender: FDA-Public Use
  Company Number: CA-ABBVIE-17K-028-1849055-00

PATIENT
  Age: 56 Year
  Sex: Female

DRUGS (6)
  1. ACTEMRA [Concomitant]
     Active Substance: TOCILIZUMAB
     Indication: PRODUCT USED FOR UNKNOWN INDICATION
  2. ENBREL [Concomitant]
     Active Substance: ETANERCEPT
     Indication: RHEUMATOID ARTHRITIS
     Route: 058
  3. ARAVA [Concomitant]
     Active Substance: LEFLUNOMIDE
     Indication: PRODUCT USED FOR UNKNOWN INDICATION
  4. PREDNISONE. [Concomitant]
     Active Substance: PREDNISONE
     Indication: PRODUCT USED FOR UNKNOWN INDICATION
  5. HUMIRA [Suspect]
     Active Substance: ADALIMUMAB
     Indication: PRODUCT USED FOR UNKNOWN INDICATION
     Route: 058
  6. RITUXAN [Concomitant]
     Active Substance: RITUXIMAB
     Indication: PRODUCT USED FOR UNKNOWN INDICATION
     Route: 042

REACTIONS (18)
  - Injection site erythema [Unknown]
  - Pain [Unknown]
  - Haemorrhage [Unknown]
  - Osteoarthritis [Unknown]
  - Adverse drug reaction [Unknown]
  - Drug ineffective [Unknown]
  - Contusion [Unknown]
  - Femur fracture [Unknown]
  - Osteoporosis [Unknown]
  - Swelling [Unknown]
  - Injection site hypersensitivity [Unknown]
  - Dysphagia [Unknown]
  - Blood pressure increased [Unknown]
  - Hypersensitivity [Unknown]
  - Injection site bruising [Unknown]
  - Rash [Unknown]
  - Pruritus generalised [Unknown]
  - Oedema peripheral [Unknown]
